FAERS Safety Report 23643601 (Version 2)
Quarter: 2024Q2

REPORT INFORMATION
  Report Type: Report from Study
  Country: GB (occurrence: GB)
  Receive Date: 20240318
  Receipt Date: 20240414
  Transmission Date: 20240716
  Serious: Yes (Other)
  Sender: FDA-Public Use
  Company Number: GB-SANDOZ-SDZ2024GB022281

PATIENT
  Sex: Female

DRUGS (1)
  1. HYRIMOZ [Suspect]
     Active Substance: ADALIMUMAB-ADAZ
     Indication: Psoriatic arthropathy
     Dosage: 40 MG EW
     Route: 058

REACTIONS (5)
  - Arthritis infective [Unknown]
  - COVID-19 [Unknown]
  - Product dose omission issue [Unknown]
  - Arthritis [Unknown]
  - Localised infection [Unknown]
